FAERS Safety Report 7605954-8 (Version None)
Quarter: 2011Q3

REPORT INFORMATION
  Report Type: 
  Country: None (occurrence: None)
  Receive Date: 20110713
  Receipt Date: 20110629
  Transmission Date: 20111222
  Serious: Yes (Hospitalization, Other)
  Sender: FDA-Public Use
  Company Number: PHHY2011TW58536

PATIENT
  Age: 51 Year
  Sex: Male

DRUGS (4)
  1. MYCOPHENOLATE MEFETIL [Concomitant]
     Indication: RENAL TRANSPLANT
  2. CYCLOSPORINE [Suspect]
     Indication: RENAL TRANSPLANT
  3. ISONIAZID [Concomitant]
  4. PREDNISOLONE [Concomitant]
     Indication: RENAL TRANSPLANT

REACTIONS (13)
  - ASPARTATE AMINOTRANSFERASE INCREASED [None]
  - JAUNDICE [None]
  - URETERIC STENOSIS [None]
  - BLOOD BILIRUBIN INCREASED [None]
  - HERPES VIRUS INFECTION [None]
  - LIVER FUNCTION TEST ABNORMAL [None]
  - HYPERURICAEMIA [None]
  - PULMONARY TUBERCULOSIS [None]
  - NEPHROPATHY [None]
  - ALANINE AMINOTRANSFERASE INCREASED [None]
  - CYSTITIS [None]
  - CYTOMEGALOVIRUS INFECTION [None]
  - URINARY TRACT INFECTION FUNGAL [None]
